FAERS Safety Report 5006914-6 (Version None)
Quarter: 2006Q2

REPORT INFORMATION
  Report Type: 
  Country: None (occurrence: None)
  Receive Date: 20060516
  Receipt Date: 20060502
  Transmission Date: 20061013
  Serious: Yes (Hospitalization)
  Sender: FDA-Public Use
  Company Number: DE200605000530

PATIENT
  Age: 11 Year
  Sex: Female

DRUGS (2)
  1. STRATTERA [Suspect]
     Indication: ATTENTION DEFICIT/HYPERACTIVITY DISORDER
     Dosage: 60 MG, DAILY (1/D), ORAL
     Route: 048
  2. METHYLPHENIDATE HCL [Concomitant]

REACTIONS (3)
  - HYPERVENTILATION [None]
  - PALPITATIONS [None]
  - SINUS TACHYCARDIA [None]
